FAERS Safety Report 13995081 (Version 1)
Quarter: 2017Q3

REPORT INFORMATION
  Report Type: Spontaneous
  Country: US (occurrence: US)
  Receive Date: 20170921
  Receipt Date: 20170921
  Transmission Date: 20171128
  Serious: No
  Sender: FDA-Public Use
  Company Number: US-009507513-1709USA008542

PATIENT
  Age: 20 Year
  Sex: Female
  Weight: 68.03 kg

DRUGS (1)
  1. NEXPLANON [Suspect]
     Active Substance: ETONOGESTREL
     Indication: CONTRACEPTION
     Dosage: 1 IMPLANT IN LEFT ARM EVERY 3 YEARS
     Route: 059
     Dates: start: 201707

REACTIONS (3)
  - Menometrorrhagia [Unknown]
  - Metrorrhagia [Unknown]
  - Fatigue [Unknown]

NARRATIVE: CASE EVENT DATE: 20170724
